FAERS Safety Report 19617065 (Version 1)
Quarter: 2021Q3

REPORT INFORMATION
  Report Type: Spontaneous
  Country: US (occurrence: US)
  Receive Date: 20210727
  Receipt Date: 20210727
  Transmission Date: 20211014
  Serious: No
  Sender: FDA-Public Use
  Company Number: US-ABBVIE-20K-163-3693374-00

PATIENT
  Sex: Female
  Weight: 70.37 kg

DRUGS (5)
  1. SYNTHROID [Suspect]
     Active Substance: LEVOTHYROXINE SODIUM
     Dosage: CHANGED TO TIROSINT
     Route: 048
     Dates: start: 2014, end: 2016
  2. SYNTHROID [Suspect]
     Active Substance: LEVOTHYROXINE SODIUM
     Indication: HYPOTHYROIDISM
     Dosage: INCREASED TO 75 MCG, THERAPY STARTED NEAR AUGUST OR SEPTEMBER 2013
     Route: 048
     Dates: start: 2013, end: 2014
  3. TIROSINT [Concomitant]
     Active Substance: LEVOTHYROXINE SODIUM
     Indication: HYPOTHYROIDISM
  4. ROSUVASTATIN. [Concomitant]
     Active Substance: ROSUVASTATIN
     Indication: BLOOD CHOLESTEROL INCREASED
  5. MIRALAX [Concomitant]
     Active Substance: POLYETHYLENE GLYCOL 3350
     Indication: CONSTIPATION

REACTIONS (10)
  - Blood phosphorus abnormal [Unknown]
  - Osteopenia [Unknown]
  - Blood cholesterol abnormal [Unknown]
  - Coeliac disease [Unknown]
  - Osteoporosis postmenopausal [Unknown]
  - Vitamin B6 abnormal [Unknown]
  - Malabsorption [Recovered/Resolved]
  - Haemoglobin decreased [Unknown]
  - Blood alkaline phosphatase abnormal [Unknown]
  - Weight decreased [Recovered/Resolved]

NARRATIVE: CASE EVENT DATE: 2013
